FAERS Safety Report 22027057 (Version 1)
Quarter: 2023Q1

REPORT INFORMATION
  Report Type: Spontaneous
  Country: PL (occurrence: None)
  Receive Date: 20230223
  Receipt Date: 20230223
  Transmission Date: 20230417
  Serious: Yes (Life-Threatening)
  Sender: FDA-Public Use
  Company Number: 2023A041863

PATIENT
  Age: 29 Year
  Sex: Female
  Weight: 58 kg

DRUGS (4)
  1. QUETIAPINE [Suspect]
     Active Substance: QUETIAPINE
  2. SERTRALINE [Suspect]
     Active Substance: SERTRALINE HYDROCHLORIDE
  3. ALPRAZOLAM [Suspect]
     Active Substance: ALPRAZOLAM
  4. LAMOTRIGINE [Suspect]
     Active Substance: LAMOTRIGINE

REACTIONS (1)
  - Toxicity to various agents [Unknown]
